FAERS Safety Report 7648117-2 (Version None)
Quarter: 2011Q3

REPORT INFORMATION
  Report Type: 
  Country: None (occurrence: None)
  Receive Date: 20110801
  Receipt Date: 20110722
  Transmission Date: 20111222
  Serious: Yes (Hospitalization)
  Sender: FDA-Public Use
  Company Number: BR-ASTRAZENECA-2011SE44068

PATIENT
  Age: 74 Year
  Sex: Female
  Weight: 73 kg

DRUGS (11)
  1. SIMVASTATIN [Concomitant]
     Indication: BLOOD CHOLESTEROL INCREASED
     Route: 048
     Dates: start: 20080101
  2. SEROQUEL [Suspect]
     Route: 048
     Dates: start: 20080101, end: 20090101
  3. SEROQUEL [Suspect]
     Route: 048
     Dates: start: 20100101, end: 20110101
  4. FIXA CAL [Concomitant]
     Route: 048
     Dates: start: 20100101
  5. CITALOPRAM HYDROBROMIDE [Concomitant]
     Route: 048
     Dates: start: 20080101
  6. SEROQUEL [Suspect]
     Route: 048
     Dates: start: 20090101, end: 20100101
  7. ASPIRIN [Concomitant]
     Route: 048
     Dates: start: 20080101
  8. CLONAZEPAM [Concomitant]
     Route: 048
     Dates: start: 20080101
  9. CARVEDILOL [Concomitant]
     Route: 048
     Dates: start: 20080101
  10. CAPTOPRIL [Concomitant]
     Route: 048
     Dates: start: 20080101
  11. SEROQUEL [Suspect]
     Route: 048
     Dates: start: 20110101

REACTIONS (6)
  - ARTERIAL OCCLUSIVE DISEASE [None]
  - SYNCOPE [None]
  - COMA [None]
  - ANAEMIA [None]
  - FATIGUE [None]
  - PAIN [None]
